FAERS Safety Report 8871415 (Version 1)
Quarter: 2012Q4

REPORT INFORMATION
  Report Type: 
  Country: US (occurrence: US)
  Receive Date: 20121026
  Receipt Date: 20121026
  Transmission Date: 20130627
  Serious: No
  Sender: FDA-Public Use
  Company Number: US-AMGEN-USASP2012048065

PATIENT
  Sex: Male
  Weight: 104.31 kg

DRUGS (10)
  1. ENBREL [Suspect]
     Indication: PRODUCT USED FOR UNKNOWN INDICATION
     Dosage: 50 mg, qwk
     Route: 058
  2. RAMIPRIL [Concomitant]
     Dosage: 1.25 mg, UNK
  3. SYNTHROID [Concomitant]
     Dosage: 100 Mcg
  4. VITAMIN E                          /00110501/ [Concomitant]
     Dosage: 1000 unit, UNK
  5. TOPROL [Concomitant]
     Dosage: 100 mg, UNK
  6. ALLOPURINOL [Concomitant]
     Dosage: 100 mg, UNK
  7. PLAVIX [Concomitant]
     Dosage: 75 mg, UNK
  8. NITROGLYCERINE [Concomitant]
     Dosage: 2.5 mg CR, UNK
  9. VITAMIN D /00107901/ [Concomitant]
     Dosage: 1000 unit, UNK
  10. WELCHOL [Concomitant]
     Dosage: 625 mg, UNK

REACTIONS (1)
  - Injection site bruising [Unknown]
